FAERS Safety Report 18218493 (Version 1)
Quarter: 2020Q3

REPORT INFORMATION
  Report Type: Spontaneous
  Country: HR (occurrence: HR)
  Receive Date: 20200901
  Receipt Date: 20200901
  Transmission Date: 20201103
  Serious: Yes (Other)
  Sender: FDA-Public Use
  Company Number: HR-TEVA-2020-HR-1821489

PATIENT
  Age: 10 Year
  Sex: Female

DRUGS (9)
  1. IDARUBICIN [Suspect]
     Active Substance: IDARUBICIN
     Indication: ACUTE LYMPHOCYTIC LEUKAEMIA RECURRENT
     Dosage: 6 MG/M2 DAILY;
     Route: 065
  2. PEGYLATED ASPARGINASE [Suspect]
     Active Substance: PEGASPARGASE
     Indication: ACUTE LYMPHOCYTIC LEUKAEMIA RECURRENT
     Dosage: PEGASPARGASE [PEGYLATED ASPARGINASE] 1000 IU/M2/D
     Route: 065
  3. PREDNISONE. [Suspect]
     Active Substance: PREDNISONE
     Indication: ACUTE LYMPHOCYTIC LEUKAEMIA RECURRENT
     Dosage: INTRATHECAL METHOTREXATE 12MG/CYTARABINE 30 MG/PREDNISONE 10 MG
     Route: 037
  4. METHOTREXATE. [Suspect]
     Active Substance: METHOTREXATE
     Indication: ACUTE LYMPHOCYTIC LEUKAEMIA RECURRENT
     Dosage: INTRATHECAL METHOTREXATE 12MG/CYTARABINE 30 MG/PREDNISONE 10 MG
     Route: 037
  5. LEVETIRACETAM. [Concomitant]
     Active Substance: LEVETIRACETAM
     Indication: SEIZURE
     Route: 065
  6. DEXAMETHASONE. [Suspect]
     Active Substance: DEXAMETHASONE
     Indication: ACUTE LYMPHOCYTIC LEUKAEMIA RECURRENT
     Dosage: 6 MG/M2 DAILY;
     Route: 065
  7. VINCRISTINE [Suspect]
     Active Substance: VINCRISTINE
     Indication: ACUTE LYMPHOCYTIC LEUKAEMIA RECURRENT
     Dosage: 1.5 MG/M2 DAILY;
     Route: 065
  8. CYTARABINE. [Suspect]
     Active Substance: CYTARABINE
     Indication: ACUTE LYMPHOCYTIC LEUKAEMIA RECURRENT
     Dosage: INTRATHECAL METHOTREXATE 12MG/CYTARABINE 30 MG/PREDNISONE 10 MG
     Route: 037
  9. VALPROIC ACID. [Concomitant]
     Active Substance: VALPROIC ACID
     Indication: SEIZURE
     Route: 065

REACTIONS (5)
  - Seizure [Recovered/Resolved]
  - Leukoencephalopathy [Recovered/Resolved]
  - Vasogenic cerebral oedema [Recovered/Resolved]
  - Neurotoxicity [Recovered/Resolved]
  - Inappropriate antidiuretic hormone secretion [Recovered/Resolved]
